FAERS Safety Report 18730811 (Version 1)
Quarter: 2021Q1

REPORT INFORMATION
  Report Type: Spontaneous
  Country: IT (occurrence: IT)
  Receive Date: 20210112
  Receipt Date: 20210112
  Transmission Date: 20210419
  Serious: Yes (Disabling)
  Sender: FDA-Public Use
  Company Number: IT-TEVA-2021-IT-1866312

PATIENT
  Age: 48 Year
  Sex: Male
  Weight: 85 kg

DRUGS (2)
  1. XENAZINA [Concomitant]
     Active Substance: TETRABENAZINE
     Indication: SCHIZOPHRENIFORM DISORDER
     Dosage: 125MILLIGRAM
     Dates: start: 20200115
  2. CLOZAPINE. [Suspect]
     Active Substance: CLOZAPINE
     Indication: SCHIZOPHRENIA
     Dosage: 125MILLIGRAM
     Route: 002
     Dates: start: 20200115

REACTIONS (1)
  - Amnesia [Not Recovered/Not Resolved]

NARRATIVE: CASE EVENT DATE: 20200115
